FAERS Safety Report 4693765-5 (Version None)
Quarter: 2005Q2

REPORT INFORMATION
  Report Type: 
  Country: None (occurrence: None)
  Receive Date: 20050616
  Receipt Date: 20050608
  Transmission Date: 20051028
  Serious: Yes (Other)
  Sender: FDA-Public Use
  Company Number: 200510372BNE

PATIENT
  Age: 23 Year
  Sex: Male

DRUGS (4)
  1. LEVITRA [Suspect]
     Indication: ERECTILE DYSFUNCTION
     Dosage: 5 MG, TOTAL DAILY, ORAL
     Route: 048
     Dates: start: 20040201, end: 20050501
  2. FLUCLOXACILLIN [Concomitant]
  3. NOVORAPID [Concomitant]
  4. LANTUS [Concomitant]

REACTIONS (2)
  - THERAPY NON-RESPONDER [None]
  - WHEEZING [None]
